FAERS Safety Report 25585693 (Version 2)
Quarter: 2025Q3

REPORT INFORMATION
  Report Type: Spontaneous
  Country: IN (occurrence: IN)
  Receive Date: 20250721
  Receipt Date: 20250725
  Transmission Date: 20251021
  Serious: Yes (Other)
  Sender: PFIZER
  Company Number: IN-PFIZER INC-PV202300186862

PATIENT
  Age: 44 Year
  Sex: Female
  Weight: 83.4 kg

DRUGS (18)
  1. LORLATINIB [Suspect]
     Active Substance: LORLATINIB
     Indication: Non-small cell lung cancer
     Dosage: 100 MG, 1X/DAY
     Route: 048
     Dates: start: 20230926
  2. LORLATINIB [Suspect]
     Active Substance: LORLATINIB
     Dosage: 75 MG, 1X/DAY
     Route: 048
  3. LORLATINIB [Suspect]
     Active Substance: LORLATINIB
     Dosage: 50 MG, 1X/DAY
     Route: 048
  4. FENOFIBRATE [Concomitant]
     Active Substance: FENOFIBRATE
     Dosage: 160 MG, 1X/DAY, HS (AT BEDTIME) FOR 8 WEEKS
  5. FENOFIBRATE [Concomitant]
     Active Substance: FENOFIBRATE
     Dosage: 160 MG, HS (AT BEDTIME) FOR 12 WEEKS
  6. THYROXINE [Concomitant]
     Active Substance: LEVOTHYROXINE
     Dosage: 50 UG, 1X/DAY, (OD X 2 MONTHS)
  7. THYROXINE [Concomitant]
     Active Substance: LEVOTHYROXINE
     Dosage: 125 UG, 1X/DAY, FOR 8 WEEKS
  8. THYROXINE [Concomitant]
     Active Substance: LEVOTHYROXINE
     Dosage: 137.5 UG, 1X/DAY FOR 12 WEEKS
  9. THYROXINE [Concomitant]
     Active Substance: LEVOTHYROXINE
     Dosage: 125 UG, 1X/DAY, FOR 12 WEEKS
  10. SPIRONOLACTONE\TORSEMIDE [Concomitant]
     Active Substance: SPIRONOLACTONE\TORSEMIDE
     Dosage: 10 MG, 1X/DAY, OD FOR 15 DAYS
  11. SPIRONOLACTONE\TORSEMIDE [Concomitant]
     Active Substance: SPIRONOLACTONE\TORSEMIDE
     Dosage: 10 MG, 1X/DAY, OD FOR 2 MONTHS
  12. SPIRONOLACTONE\TORSEMIDE [Concomitant]
     Active Substance: SPIRONOLACTONE\TORSEMIDE
     Dosage: 10 MG, 1X/DAY, OD FOR 3 MONTHS
  13. CALCIUM CARBONATE\CHOLECALCIFEROL [Concomitant]
     Active Substance: CALCIUM CARBONATE\CHOLECALCIFEROL
     Dosage: UNK, 1X/DAY FOR 2 MONTHS
  14. CALCIUM CARBONATE\CHOLECALCIFEROL [Concomitant]
     Active Substance: CALCIUM CARBONATE\CHOLECALCIFEROL
     Dosage: UNK, 1X/DAY FOR 3 MONTHS
  15. GABAPIN NT [Concomitant]
     Dosage: 100 MG, 1X/DAY, HS AT BED TIME FOR 2 MONTHS
  16. GABAPIN NT [Concomitant]
     Dosage: 100 MG, 1X/DAY, HS AT BED TIME FOR 3 MONTHS
  17. ROSUVASTATIN CALCIUM [Concomitant]
     Active Substance: ROSUVASTATIN CALCIUM
     Dosage: 10 MG, 1X/DAY, HS (AT BED TIME) FOR 2 MONTH
  18. ROSUVASTATIN CALCIUM [Concomitant]
     Active Substance: ROSUVASTATIN CALCIUM
     Dosage: 20 MG, 1X/DAY, HS (AT BED TIME) FOR 2 MONTH

REACTIONS (6)
  - Body mass index increased [Unknown]
  - Blood cholesterol abnormal [Unknown]
  - Weight increased [Unknown]
  - Anger [Unknown]
  - Pain in extremity [Unknown]
  - Mood swings [Unknown]
